FAERS Safety Report 9695542 (Version 1)
Quarter: 2013Q4

REPORT INFORMATION
  Report Type: Spontaneous
  Country: US (occurrence: US)
  Receive Date: 20131119
  Receipt Date: 20131119
  Transmission Date: 20140711
  Serious: No
  Sender: FDA-Public Use
  Company Number: US-PFIZER INC-2013328335

PATIENT
  Age: 69 Year
  Sex: Female
  Weight: 53.52 kg

DRUGS (3)
  1. NEURONTIN [Suspect]
     Indication: ARTHRALGIA
     Dosage: 300 MG, 2X/DAY
     Route: 048
     Dates: start: 201310
  2. ALBUTEROL [Concomitant]
     Indication: DYSPNOEA
     Dosage: UNK
  3. SINGULAIR [Concomitant]
     Dosage: UNK

REACTIONS (2)
  - Off label use [Unknown]
  - Oral disorder [Not Recovered/Not Resolved]
